FAERS Safety Report 21633338 (Version 3)
Quarter: 2023Q1

REPORT INFORMATION
  Report Type: Report from Study
  Country: ES (occurrence: None)
  Receive Date: 20221123
  Receipt Date: 20230113
  Transmission Date: 20230417
  Serious: Yes (Other)
  Sender: FDA-Public Use
  Company Number: ES-Eisai Medical Research-EC-2022-128405

PATIENT
  Age: 74 Year
  Sex: Male
  Weight: 70 kg

DRUGS (3)
  1. SORAFENIB [Suspect]
     Active Substance: SORAFENIB
     Indication: Hepatocellular carcinoma
     Dosage: UNKNOWN DOSE AND FREQUENCY
     Route: 048
     Dates: start: 20220404, end: 2022
  2. SORAFENIB [Suspect]
     Active Substance: SORAFENIB
     Route: 048
     Dates: start: 20220704, end: 20221105
  3. SORAFENIB [Suspect]
     Active Substance: SORAFENIB
     Dosage: UNKNOWN FREQUENCY
     Route: 048
     Dates: start: 20221107, end: 20221121

REACTIONS (1)
  - Electrocardiogram QT prolonged [Recovered/Resolved]

NARRATIVE: CASE EVENT DATE: 20220704
